FAERS Safety Report 6575919-6 (Version None)
Quarter: 2010Q1

REPORT INFORMATION
  Report Type: 
  Country: None (occurrence: None)
  Receive Date: 20100209
  Receipt Date: 20100127
  Transmission Date: 20100710
  Serious: Yes (Other)
  Sender: FDA-Public Use
  Company Number: US-ELI_LILLY_AND_COMPANY-US201002000906

PATIENT
  Age: 50 Year
  Sex: Female

DRUGS (3)
  1. SYMBYAX [Suspect]
     Dosage: 1 D/F, UNKNOWN
     Route: 065
     Dates: start: 20050101
  2. SYMBYAX [Suspect]
     Dosage: 1 D/F, UNK
     Dates: start: 20060101
  3. VITAMINS [Concomitant]

REACTIONS (1)
  - WEIGHT INCREASED [None]
